FAERS Safety Report 8790715 (Version 1)
Quarter: 2012Q4

REPORT INFORMATION
  Report Type: Spontaneous
  Country: GB (occurrence: None)
  Receive Date: 20120910
  Receipt Date: 20120910
  Transmission Date: 20130627
  Serious: No
  Sender: FDA-Public Use
  Company Number: TUK2012A00238

PATIENT
  Age: 53 Year
  Sex: Male

DRUGS (1)
  1. PIOGLITAZONE HYDROCHLORIDE [Suspect]
     Indication: DIABETES
     Route: 048
     Dates: start: 20080729, end: 20120404

REACTIONS (1)
  - Normochromic normocytic anaemia [None]
